FAERS Safety Report 13669964 (Version 5)
Quarter: 2018Q2

REPORT INFORMATION
  Report Type: Report from Study
  Country: US (occurrence: US)
  Receive Date: 20170620
  Receipt Date: 20180404
  Transmission Date: 20180711
  Serious: Yes (Other)
  Sender: FDA-Public Use
  Company Number: US-AMGEN-USASL2017090995

PATIENT
  Age: 76 Year
  Sex: Female

DRUGS (2)
  1. ENBREL [Suspect]
     Active Substance: ETANERCEPT
     Indication: RHEUMATOID ARTHRITIS
     Dosage: 50 MG, QWK
     Route: 065
     Dates: start: 2016
  2. ENBREL [Suspect]
     Active Substance: ETANERCEPT
     Dosage: 50 MG, QWK
     Route: 065

REACTIONS (10)
  - Drug effect incomplete [Unknown]
  - Skin cancer [Unknown]
  - Hypertension [Unknown]
  - Peripheral swelling [Unknown]
  - Pain [Unknown]
  - Heart rate irregular [Unknown]
  - Impaired healing [Not Recovered/Not Resolved]
  - Renal disorder [Unknown]
  - Nodule [Unknown]
  - Arthropathy [Unknown]

NARRATIVE: CASE EVENT DATE: 201705
